FAERS Safety Report 4277355-4 (Version None)
Quarter: 2004Q1

REPORT INFORMATION
  Report Type: 
  Country: None (occurrence: None)
  Receive Date: 20040122
  Receipt Date: 20040114
  Transmission Date: 20041129
  Serious: Yes (Hospitalization)
  Sender: FDA-Public Use
  Company Number: PHRM2004FR00530

PATIENT
  Age: 60 Year
  Sex: Female

DRUGS (3)
  1. GYNERGENE CAFEINE [Suspect]
     Indication: HEADACHE
     Dosage: 120 TABS/MONTH
     Route: 048
     Dates: start: 19970615, end: 20030328
  2. INDOCIN [Suspect]
     Indication: HEADACHE
     Dosage: 20 MG/MONTH
     Route: 048
     Dates: start: 19970615, end: 20030328
  3. ASPEGIC 1000 [Suspect]
     Dosage: 30 G/MONTH
     Route: 048
     Dates: start: 19970615, end: 20030328

REACTIONS (1)
  - DRUG DEPENDENCE [None]
